FAERS Safety Report 9373966 (Version 1)
Quarter: 2013Q2

REPORT INFORMATION
  Report Type: Report from Study
  Country: US (occurrence: US)
  Receive Date: 20130628
  Receipt Date: 20130628
  Transmission Date: 20140414
  Serious: Yes (Other)
  Sender: FDA-Public Use
  Company Number: US-ROCHE-1240485

PATIENT
  Sex: 0

DRUGS (5)
  1. MYCOPHENOLATE MOFETIL [Suspect]
     Indication: PROPHYLAXIS AGAINST TRANSPLANT REJECTION
     Route: 042
  2. SIROLIMUS [Suspect]
     Indication: PROPHYLAXIS AGAINST TRANSPLANT REJECTION
     Route: 065
  3. CYCLOSPORINE A [Suspect]
     Indication: PROPHYLAXIS AGAINST TRANSPLANT REJECTION
     Route: 065
  4. METHYLPREDNISOLONE [Suspect]
     Indication: PROPHYLAXIS AGAINST TRANSPLANT REJECTION
     Route: 042
  5. BASILIXIMAB [Suspect]
     Indication: PROPHYLAXIS AGAINST TRANSPLANT REJECTION
     Route: 042

REACTIONS (13)
  - Sepsis [Unknown]
  - Bladder cancer [Unknown]
  - Squamous cell carcinoma [Unknown]
  - Diarrhoea [Unknown]
  - Urinary tract infection [Unknown]
  - Infection [Unknown]
  - Intravascular papillary endothelial hyperplasia [Unknown]
  - Basal cell carcinoma [Unknown]
  - Blood creatinine increased [Unknown]
  - Lymphocele [Unknown]
  - Renal tubular necrosis [Unknown]
  - Transplant rejection [Unknown]
  - Impaired healing [Unknown]
